FAERS Safety Report 17638237 (Version 2)
Quarter: 2020Q2

REPORT INFORMATION
  Report Type: Report from Study
  Country: US (occurrence: US)
  Receive Date: 20200407
  Receipt Date: 20200413
  Transmission Date: 20200713
  Serious: Yes (Life-Threatening, Hospitalization, Other)
  Sender: FDA-Public Use
  Company Number: US-ACTELION-A-US2017-160318

PATIENT
  Age: 49 Year
  Sex: Male

DRUGS (1)
  1. OPSUMIT [Suspect]
     Active Substance: MACITENTAN
     Indication: PULMONARY HYPERTENSION
     Dosage: UNK
     Route: 048
     Dates: start: 20160616

REACTIONS (6)
  - Prostatic specific antigen [Not Recovered/Not Resolved]
  - Pneumonia [Recovered/Resolved]
  - Prostate cancer [Not Recovered/Not Resolved]
  - Blood bilirubin increased [Unknown]
  - Upper respiratory tract infection [Recovered/Resolved]
  - Gout [Unknown]

NARRATIVE: CASE EVENT DATE: 201610
